FAERS Safety Report 4795363-1 (Version None)
Quarter: 2005Q4

REPORT INFORMATION
  Report Type: 
  Country: None (occurrence: None)
  Receive Date: 20051006
  Receipt Date: 20050915
  Transmission Date: 20060501
  Serious: Yes (Hospitalization)
  Sender: FDA-Public Use
  Company Number: ENT 2005-0138

PATIENT
  Age: 79 Year
  Sex: Male

DRUGS (1)
  1. COMTAN [Suspect]
     Dosage: ORAL
     Route: 048
     Dates: start: 20031101

REACTIONS (4)
  - APLASIA PURE RED CELL [None]
  - NORMOCHROMIC NORMOCYTIC ANAEMIA [None]
  - RENAL FAILURE [None]
  - SEPSIS [None]
